FAERS Safety Report 7035974-6 (Version None)
Quarter: 2010Q4

REPORT INFORMATION
  Report Type: 
  Country: None (occurrence: None)
  Receive Date: 20101008
  Receipt Date: 20100930
  Transmission Date: 20110411
  Serious: Yes (Other)
  Sender: FDA-Public Use
  Company Number: JP-BAYER-201011567BYL

PATIENT
  Age: 69 Year
  Sex: Female
  Weight: 55 kg

DRUGS (6)
  1. NEXAVAR [Suspect]
     Indication: RENAL CELL CARCINOMA
     Dosage: TOTAL DAILY DOSE: 800 MG  UNIT DOSE: 200 MG
     Route: 048
     Dates: start: 20090722, end: 20090810
  2. SELBEX [Concomitant]
     Indication: PROPHYLAXIS AGAINST GASTROINTESTINAL ULCER
     Route: 048
     Dates: start: 20090716, end: 20090810
  3. LOXONIN [Concomitant]
     Route: 048
     Dates: start: 20090716, end: 20090810
  4. METHYCOBAL [Concomitant]
     Route: 048
     Dates: start: 20090720, end: 20090810
  5. RHYTHMY [Concomitant]
     Indication: INSOMNIA
     Route: 048
     Dates: start: 20090726, end: 20090810
  6. PURSENNID [Concomitant]
     Route: 048
     Dates: start: 20090716, end: 20090810

REACTIONS (2)
  - BONE MARROW FAILURE [None]
  - RASH [None]
